FAERS Safety Report 24187436 (Version 3)
Quarter: 2024Q3

REPORT INFORMATION
  Report Type: Report from Study
  Country: US (occurrence: US)
  Receive Date: 20240808
  Receipt Date: 20240910
  Transmission Date: 20241016
  Serious: Yes (Hospitalization, Other)
  Sender: ROCHE
  Company Number: US-ROCHE-10000048026

PATIENT
  Age: 26 Year
  Sex: Male
  Weight: 72.57 kg

DRUGS (17)
  1. RITUXAN [Suspect]
     Active Substance: RITUXIMAB
     Indication: Diffuse large B-cell lymphoma
     Route: 065
  2. VENCLEXTA [Suspect]
     Active Substance: VENETOCLAX
     Indication: Diffuse large B-cell lymphoma
     Dosage: MORE DOSAGE INFORMATION IS 46 TABLET
     Route: 065
  3. ACYCLOVIR [Concomitant]
     Active Substance: ACYCLOVIR
  4. KEPPRA [Concomitant]
     Active Substance: LEVETIRACETAM
  5. ZOVIRAX [Concomitant]
     Active Substance: ACYCLOVIR
  6. ZYLOPRIM [Concomitant]
     Active Substance: ALLOPURINOL
  7. DECADRON [Concomitant]
     Active Substance: DEXAMETHASONE
  8. VOLTAREN [Concomitant]
     Active Substance: DICLOFENAC SODIUM
  9. IMBRUVICA [Concomitant]
     Active Substance: IBRUTINIB
  10. REVLIMID [Concomitant]
     Active Substance: LENALIDOMIDE
  11. PANTOPRAZOLE [Concomitant]
     Active Substance: PANTOPRAZOLE
  12. BACTRIM [Concomitant]
     Active Substance: SULFAMETHOXAZOLE\TRIMETHOPRIM
  13. KENALOG [Concomitant]
     Active Substance: TRIAMCINOLONE ACETONIDE
  14. VENCLEXTA [Concomitant]
     Active Substance: VENETOCLAX
  15. loncastuximab [Concomitant]
  16. VINCRISTINE [Concomitant]
     Active Substance: VINCRISTINE
  17. CYTOXAN [Concomitant]
     Active Substance: CYCLOPHOSPHAMIDE

REACTIONS (16)
  - Pyrexia [Unknown]
  - Depression [Unknown]
  - Hypotension [Unknown]
  - Cytokine release syndrome [Unknown]
  - Chills [Unknown]
  - Febrile neutropenia [Unknown]
  - Pancytopenia [Unknown]
  - Acute kidney injury [Unknown]
  - Febrile neutropenia [Unknown]
  - Sepsis [Unknown]
  - Neutrophilia [Unknown]
  - Seizure [Unknown]
  - Disease progression [Unknown]
  - Pulmonary mass [Unknown]
  - Off label use [Unknown]
  - Tachycardia [Unknown]

NARRATIVE: CASE EVENT DATE: 20240320
